FAERS Safety Report 4500586-2 (Version None)
Quarter: 2004Q4

REPORT INFORMATION
  Report Type: 
  Country: None (occurrence: None)
  Receive Date: 20041115
  Receipt Date: 20041105
  Transmission Date: 20050328
  Serious: Yes (Death)
  Sender: FDA-Public Use
  Company Number: FR-ABBOTT-04P-056-0279959-00

PATIENT
  Sex: Male

DRUGS (3)
  1. DEPAKOTE [Suspect]
     Indication: DRUG USE FOR UNKNOWN INDICATION
     Dosage: IMPORTANT DOSE REGIMEN
     Route: 048
  2. CLOZAPINE [Suspect]
     Indication: DRUG USE FOR UNKNOWN INDICATION
     Dosage: IMPORTANT DOSE REGIMEN
     Route: 048
  3. OTHER PSYCHOTHERAPEUTIC DRUGS [Concomitant]
     Indication: DRUG USE FOR UNKNOWN INDICATION
     Dosage: IMPORTANT DOSE REGIMEN

REACTIONS (3)
  - ABDOMINAL DISTENSION [None]
  - GASTROINTESTINAL OBSTRUCTION [None]
  - OVERDOSE [None]
